FAERS Safety Report 19905142 (Version 4)
Quarter: 2021Q4

REPORT INFORMATION
  Report Type: Spontaneous
  Country: US (occurrence: US)
  Receive Date: 20211001
  Receipt Date: 20211006
  Transmission Date: 20220303
  Serious: Yes (Hospitalization)
  Sender: FDA-Public Use
  Company Number: US-CELGENE-USA-20210907052

PATIENT
  Age: 78 Year
  Sex: Male

DRUGS (1)
  1. POMALYST [Suspect]
     Active Substance: POMALIDOMIDE
     Indication: Plasma cell myeloma
     Dosage: 2 MILLIGRAM
     Route: 048
     Dates: start: 20200616

REACTIONS (5)
  - COVID-19 pneumonia [Unknown]
  - Back injury [Unknown]
  - Fall [Unknown]
  - Adverse event [Unknown]
  - Limb injury [Unknown]

NARRATIVE: CASE EVENT DATE: 20210905
